FAERS Safety Report 20120845 (Version 1)
Quarter: 2021Q4

REPORT INFORMATION
  Report Type: Spontaneous
  Country: IT (occurrence: IT)
  Receive Date: 20211127
  Receipt Date: 20211127
  Transmission Date: 20220303
  Serious: Yes (Other)
  Sender: FDA-Public Use
  Company Number: None

PATIENT
  Age: 74 Year
  Sex: Female
  Weight: 70 kg

DRUGS (3)
  1. DENOSUMAB [Suspect]
     Active Substance: DENOSUMAB
     Indication: Metastases to bone
     Route: 058
     Dates: start: 20211020, end: 20211020
  2. FULVESTRANT [Suspect]
     Active Substance: FULVESTRANT
     Indication: Metaplastic breast carcinoma
     Dosage: 500 MILLIGRAM
     Route: 030
     Dates: start: 20211017, end: 20211103
  3. ABEMACICLIB [Suspect]
     Active Substance: ABEMACICLIB
     Indication: Metaplastic breast carcinoma
     Route: 048
     Dates: start: 20211017, end: 20211102

REACTIONS (2)
  - Loss of consciousness [Recovered/Resolved]
  - Diarrhoea [Recovered/Resolved]

NARRATIVE: CASE EVENT DATE: 20211103
